FAERS Safety Report 8091623-X (Version None)
Quarter: 2012Q1

REPORT INFORMATION
  Report Type: 
  Country: None (occurrence: None)
  Receive Date: 20120131
  Receipt Date: 20120130
  Transmission Date: 20120608
  Serious: Yes (Other)
  Sender: FDA-Public Use
  Company Number: US-PFIZER INC-2012025186

PATIENT
  Age: 26 Year
  Sex: Male
  Weight: 68.027 kg

DRUGS (5)
  1. CHANTIX [Suspect]
     Indication: SMOKING CESSATION THERAPY
     Dosage: UNK
     Dates: start: 20120102, end: 20120101
  2. CHANTIX [Suspect]
     Dosage: 1 MG, 2X/DAY
     Dates: start: 20120101, end: 20120114
  3. CHANTIX [Suspect]
     Dosage: 1 MG, 2X/DAY
     Dates: start: 20120124, end: 20120128
  4. BUSPAR [Concomitant]
     Indication: SCHIZOPHRENIA
     Dosage: 10 MG, AS NEEDED
     Dates: start: 20110101
  5. RISPERDAL [Concomitant]
     Indication: SCHIZOPHRENIA
     Dosage: 1 MG IN MORNING AND 2 MG AT NIGHT
     Dates: start: 20110101

REACTIONS (6)
  - IRRITABILITY [None]
  - ABNORMAL DREAMS [None]
  - ANXIETY [None]
  - MALAISE [None]
  - DEPRESSION [None]
  - AGITATION [None]
